FAERS Safety Report 20385727 (Version 7)
Quarter: 2022Q2

REPORT INFORMATION
  Report Type: Report from Study
  Country: US (occurrence: US)
  Receive Date: 20220127
  Receipt Date: 20220517
  Transmission Date: 20220721
  Serious: Yes (Other)
  Sender: FDA-Public Use
  Company Number: US-NOVARTISTESTPH-NVSC2022US017457

PATIENT
  Sex: Female

DRUGS (2)
  1. ENTRESTO [Suspect]
     Active Substance: SACUBITRIL\VALSARTAN
     Indication: Product used for unknown indication
     Dosage: 1 DOSAGE FORM, BID (49/51 MG) STOPPED IN FEB 2022
     Route: 065
     Dates: start: 202112, end: 202202
  2. ENTRESTO [Suspect]
     Active Substance: SACUBITRIL\VALSARTAN
     Dosage: 1 DOSAGE FORM, BID (97/103 MG) STARTED FROM FEB 2022
     Route: 065
     Dates: start: 202202

REACTIONS (16)
  - Cardiac failure [Unknown]
  - Arthralgia [Unknown]
  - Oropharyngeal pain [Recovering/Resolving]
  - Chest pain [Unknown]
  - Neck pain [Unknown]
  - Tinnitus [Unknown]
  - Visual field defect [Unknown]
  - Fear [Unknown]
  - Malaise [Recovering/Resolving]
  - Gastrointestinal disorder [Recovering/Resolving]
  - Depression [Unknown]
  - Back pain [Unknown]
  - Heart rate irregular [Unknown]
  - Tearfulness [Unknown]
  - Weight decreased [Unknown]
  - Hypotension [Unknown]
